FAERS Safety Report 8591436-6 (Version None)
Quarter: 2012Q3

REPORT INFORMATION
  Report Type: 
  Country: None (occurrence: None)
  Receive Date: 20120814
  Receipt Date: 20120809
  Transmission Date: 20120928
  Serious: Yes (Death, Other)
  Sender: FDA-Public Use
  Company Number: US-BAYER-2012-068677

PATIENT
  Age: 22 Year
  Sex: Female

DRUGS (1)
  1. ULTRAVIST 150 [Suspect]
     Indication: ABDOMEN SCAN
     Dosage: 125 ML, ONCE
     Route: 042
     Dates: start: 20120703, end: 20120703

REACTIONS (6)
  - ACUTE PULMONARY OEDEMA [None]
  - ANAPHYLACTIC SHOCK [None]
  - PALPITATIONS [None]
  - CARDIAC ARREST [None]
  - DYSPNOEA [None]
  - HYPOTENSION [None]
